FAERS Safety Report 12639606 (Version 7)
Quarter: 2016Q4

REPORT INFORMATION
  Report Type: Report from Study
  Country: JP (occurrence: JP)
  Receive Date: 20160810
  Receipt Date: 20161015
  Transmission Date: 20170207
  Serious: Yes (Death, Other)
  Sender: FDA-Public Use
  Company Number: JP-ASTRAZENECA-2016SE84987

PATIENT
  Age: 80 Year
  Sex: Female
  Weight: 38 kg

DRUGS (9)
  1. ALLOPURINOL. [Concomitant]
     Active Substance: ALLOPURINOL
     Indication: HYPERURICAEMIA
     Dosage: 200.0MG UNKNOWN
     Route: 048
     Dates: end: 20160730
  2. IRESSA [Suspect]
     Active Substance: GEFITINIB
     Route: 048
     Dates: start: 20160414, end: 20160601
  3. PRAZAXA [Concomitant]
     Active Substance: DABIGATRAN ETEXILATE MESYLATE
     Indication: THROMBOSIS PROPHYLAXIS
     Dosage: 220.0MG UNKNOWN
     Route: 048
     Dates: end: 20160730
  4. AZOSEMIDE [Concomitant]
     Active Substance: AZOSEMIDE
     Indication: CARDIAC FAILURE CHRONIC
     Dosage: 30.0MG UNKNOWN
     Route: 048
     Dates: end: 20160730
  5. TEPRENONE [Concomitant]
     Active Substance: TEPRENONE
     Indication: GASTRITIS
     Route: 048
     Dates: end: 20160730
  6. TAGRISSO [Suspect]
     Active Substance: OSIMERTINIB
     Indication: NON-SMALL CELL LUNG CANCER
     Route: 048
     Dates: start: 20160607, end: 20160727
  7. SPIRONOLACTONE. [Concomitant]
     Active Substance: SPIRONOLACTONE
     Indication: CARDIAC FAILURE CHRONIC
     Dosage: 25.0MG UNKNOWN
     Route: 048
     Dates: end: 20160730
  8. IRESSA [Suspect]
     Active Substance: GEFITINIB
     Route: 048
     Dates: start: 20120418, end: 20150114
  9. EQUA [Concomitant]
     Active Substance: VILDAGLIPTIN
     Indication: DIABETES MELLITUS
     Route: 048
     Dates: end: 20160730

REACTIONS (11)
  - Cardiac failure chronic [Fatal]
  - Prerenal failure [Fatal]
  - Pulmonary congestion [Unknown]
  - Atrial fibrillation [Unknown]
  - Cardiac valve disease [Unknown]
  - Hemiparesis [Unknown]
  - Blood pressure decreased [Unknown]
  - Multiple organ dysfunction syndrome [Unknown]
  - Interstitial lung disease [Fatal]
  - Cerebral infarction [Unknown]
  - Facial paralysis [Unknown]

NARRATIVE: CASE EVENT DATE: 20160728
